FAERS Safety Report 8119000-3 (Version None)
Quarter: 2012Q1

REPORT INFORMATION
  Report Type: 
  Country: None (occurrence: None)
  Receive Date: 20120207
  Receipt Date: 20120125
  Transmission Date: 20120608
  Serious: Yes (Other)
  Sender: FDA-Public Use
  Company Number: US-ROCHE-784278

PATIENT
  Sex: Male
  Weight: 68.1 kg

DRUGS (4)
  1. ADDERALL 5 [Concomitant]
  2. MERCAPTOPURINE [Concomitant]
  3. ACCUTANE [Suspect]
     Indication: ACNE
     Route: 065
     Dates: start: 20020707, end: 20021027
  4. MERCAPTOPURINE [Concomitant]

REACTIONS (6)
  - STRESS [None]
  - INFLAMMATORY BOWEL DISEASE [None]
  - ATTENTION DEFICIT/HYPERACTIVITY DISORDER [None]
  - INTESTINAL HAEMORRHAGE [None]
  - DEPRESSION [None]
  - CROHN'S DISEASE [None]
